FAERS Safety Report 5229017-4 (Version None)
Quarter: 2007Q1

REPORT INFORMATION
  Report Type: 
  Country: None (occurrence: None)
  Receive Date: 20061201
  Receipt Date: 20060914
  Transmission Date: 20070707
  Serious: No
  Sender: FDA-Public Use
  Company Number: US200609003365

PATIENT
  Age: 70 Year
  Sex: Male

DRUGS (11)
  1. CYMBALTA [Suspect]
     Indication: DEPRESSION
     Dosage: 30 MG UNK ORAL
     Route: 048
     Dates: start: 20060911
  2. PREGABALIN (PREGABALIN) [Concomitant]
  3. GLUCO-RITE (GLIPIZIDE) [Concomitant]
  4. OMEPRAZOLE [Concomitant]
  5. ACTOS/USA/(PIOGLITAZONE HYDROCHLORIDE) [Concomitant]
  6. BUPROPION HCL [Concomitant]
  7. GLYBURIDE [Concomitant]
  8. METFORMIN HCL [Concomitant]
  9. TRAZODONE HCL [Concomitant]
  10. QUININE SULFATE [Concomitant]
  11. SKELAXIN [Concomitant]

REACTIONS (2)
  - BEDRIDDEN [None]
  - FEELING ABNORMAL [None]
